FAERS Safety Report 14120447 (Version 1)
Quarter: 2017Q4

REPORT INFORMATION
  Report Type: Spontaneous
  Country: IT (occurrence: IT)
  Receive Date: 20171024
  Receipt Date: 20171024
  Transmission Date: 20180321
  Serious: Yes (Other)
  Sender: FDA-Public Use
  Company Number: PHHY2017IT154745

PATIENT
  Age: 82 Year
  Sex: Male

DRUGS (10)
  1. METFORMIN [Suspect]
     Active Substance: METFORMIN HYDROCHLORIDE
     Indication: TYPE 2 DIABETES MELLITUS
     Dosage: 500 MG, BID
     Route: 065
  2. GLIMEPIRIDE. [Suspect]
     Active Substance: GLIMEPIRIDE
     Indication: TYPE 2 DIABETES MELLITUS
     Dosage: 2 MG, QD
     Route: 065
  3. FUROSEMIDE. [Concomitant]
     Active Substance: FUROSEMIDE
     Indication: CARDIAC FAILURE
     Dosage: 2 TABLETS OF FUROSEMIDE 25 MG DAILY
     Route: 065
  4. VALSARTAN. [Concomitant]
     Active Substance: VALSARTAN
     Indication: HYPERTENSION
     Dosage: 160 MG, QD
     Route: 065
  5. OXAZEPAM. [Concomitant]
     Active Substance: OXAZEPAM
     Indication: PRODUCT USED FOR UNKNOWN INDICATION
     Dosage: 15 MG, QD (IN THE EVENING)
     Route: 065
  6. PARACETAMOL [Concomitant]
     Active Substance: ACETAMINOPHEN
     Indication: ARTHRITIS
     Route: 065
  7. DABIGATRAN [Concomitant]
     Active Substance: DABIGATRAN
     Indication: DILATATION ATRIAL
     Dosage: 140 MG, BID
     Route: 065
  8. DOXAZOSIN [Concomitant]
     Active Substance: DOXAZOSIN\DOXAZOSIN MESYLATE
     Indication: HYPERTENSION
     Dosage: 5 MG, QD
     Route: 065
  9. ACETAMINOPHEN AND CODEINE [Concomitant]
     Active Substance: ACETAMINOPHEN\CODEINE PHOSPHATE
     Indication: ARTHRITIS
     Dosage: PARACETAMOL 500 MG AND CODEINE 30 MG, DOSAGE OF 3 TABLETS DAILY
     Route: 065
  10. ETORICOXIB [Concomitant]
     Active Substance: ETORICOXIB
     Indication: ARTHRITIS
     Dosage: ETEROCOXIB 90 MG DAILY + PARACETAMOL 1000 MG 3 TABLETS DAILY
     Route: 065

REACTIONS (1)
  - Diabetic metabolic decompensation [Unknown]
